FAERS Safety Report 8890735 (Version 3)
Quarter: 2013Q1

REPORT INFORMATION
  Report Type: Spontaneous
  Country: GR (occurrence: GR)
  Receive Date: 20121106
  Receipt Date: 20130124
  Transmission Date: 20140127
  Serious: Yes (Life-Threatening)
  Sender: FDA-Public Use
  Company Number: GR-VERTEX PHARMACEUTICAL INC.-2012-024150

PATIENT
  Sex: Male

DRUGS (3)
  1. INCIVO [Suspect]
     Indication: HEPATITIS C
     Dosage: DOSAGE FORM: TABLET
     Route: 048
  2. RIBAVIRIN [Suspect]
     Indication: PRODUCT USED FOR UNKNOWN INDICATION
     Dosage: DOSAGE FORM: UNSPECIFIED
     Route: 065
  3. PEG-INTERFERON [Suspect]
     Indication: PRODUCT USED FOR UNKNOWN INDICATION
     Dosage: DOSAGE FORM: UNSPECIFIED
     Route: 065

REACTIONS (6)
  - White blood cell count decreased [Unknown]
  - Dry skin [Unknown]
  - Aphthous stomatitis [Recovered/Resolved]
  - Dyspepsia [Unknown]
  - Thrombocytopenia [Recovered/Resolved]
  - Haematocrit decreased [Unknown]
